FAERS Safety Report 11271957 (Version 1)
Quarter: 2015Q3

REPORT INFORMATION
  Report Type: Spontaneous
  Country: US (occurrence: None)
  Receive Date: 20150713
  Receipt Date: 20150713
  Transmission Date: 20151125
  Serious: Yes (Disabling)
  Sender: FDA-Public Use
  Company Number: None

PATIENT
  Age: 60 Year
  Sex: Female
  Weight: 76.2 kg

DRUGS (5)
  1. IBUPROPHEN [Suspect]
     Active Substance: IBUPROFEN
     Indication: JOINT INJURY
     Route: 048
     Dates: start: 20150612, end: 20150709
  2. IBUPROPHEN [Suspect]
     Active Substance: IBUPROFEN
     Route: 048
     Dates: start: 20150612, end: 20150709
  3. BIOTIN [Concomitant]
     Active Substance: BIOTIN
  4. IBUPROPHEN [Suspect]
     Active Substance: IBUPROFEN
     Indication: FALL
     Route: 048
     Dates: start: 20150612, end: 20150709
  5. VITAMIN B12 [Concomitant]
     Active Substance: CYANOCOBALAMIN

REACTIONS (5)
  - Joint swelling [None]
  - Muscular weakness [None]
  - Chills [None]
  - Pain in extremity [None]
  - Hyperhidrosis [None]

NARRATIVE: CASE EVENT DATE: 20150618
